FAERS Safety Report 7447668-3 (Version None)
Quarter: 2011Q2

REPORT INFORMATION
  Report Type: 
  Country: None (occurrence: None)
  Receive Date: 20110429
  Receipt Date: 20110218
  Transmission Date: 20111010
  Serious: No
  Sender: FDA-Public Use
  Company Number: US-ASTRAZENECA-2011SE00981

PATIENT
  Age: 78 Year
  Sex: Female
  Weight: 82.6 kg

DRUGS (7)
  1. NEXIUM [Suspect]
     Indication: HIATUS HERNIA
     Route: 048
  2. HYDROCHLOROT [Concomitant]
  3. METOPROLOL SUCCINATE [Concomitant]
     Indication: CARDIAC DISORDER
  4. ASPIRIN [Concomitant]
  5. XANAX [Concomitant]
  6. ISOXSUTRINE [Concomitant]
     Indication: DIZZINESS
  7. TRICOR [Concomitant]

REACTIONS (4)
  - MALAISE [None]
  - ABDOMINAL PAIN UPPER [None]
  - DRUG DOSE OMISSION [None]
  - DIZZINESS [None]
